FAERS Safety Report 17290829 (Version 1)
Quarter: 2020Q1

REPORT INFORMATION
  Report Type: Report from Study
  Country: US (occurrence: US)
  Receive Date: 20200121
  Receipt Date: 20200121
  Transmission Date: 20200409
  Serious: Yes (Hospitalization, Other)
  Sender: FDA-Public Use
  Company Number: US-ACCORD-169880

PATIENT
  Age: 2 Month

DRUGS (8)
  1. FILGRASTIM [Concomitant]
     Active Substance: FILGRASTIM
     Indication: PROPHYLAXIS
     Dosage: 5 MICROG/KG/DAY
  2. ETOPOSIDE. [Suspect]
     Active Substance: ETOPOSIDE
     Indication: EXTRAGONADAL PRIMARY EMBRYONAL CARCINOMA
     Dosage: 2.5 MG/KG/DAY
  3. MESNA. [Concomitant]
     Active Substance: MESNA
     Indication: PROPHYLAXIS
     Dosage: 100% OF THE DAILY CYCLOPHOSPHAMIDE DOSE ON DAYS A AND B
  4. METHOTREXATE. [Suspect]
     Active Substance: METHOTREXATE
     Indication: EXTRAGONADAL PRIMARY EMBRYONAL CARCINOMA
     Dosage: 8 G/M2/DAY
  5. VINCRISTINE [Suspect]
     Active Substance: VINCRISTINE
     Indication: EXTRAGONADAL PRIMARY EMBRYONAL CARCINOMA
     Dosage: 0.05 MG/KG/DAY
  6. CYCLOPHOSPHAMIDE/CYCLOPHOSPHAMIDE MONOHYDRATE [Suspect]
     Active Substance: CYCLOPHOSPHAMIDE
     Indication: EXTRAGONADAL PRIMARY EMBRYONAL CARCINOMA
     Dosage: 60 MG/KG/DAY
  7. CISPLATIN. [Suspect]
     Active Substance: CISPLATIN
     Indication: EXTRAGONADAL PRIMARY EMBRYONAL CARCINOMA
     Dosage: 3.4 MG/KG/DAY
  8. FOLINIC ACID [Concomitant]
     Active Substance: LEUCOVORIN
     Indication: PROPHYLAXIS
     Dosage: EVERY 6 HOURS

REACTIONS (6)
  - Enterobacter infection [Unknown]
  - Fusobacterium infection [Unknown]
  - Pyrexia [Unknown]
  - Off label use [Unknown]
  - Neutropenia [Unknown]
  - Mucosal inflammation [Unknown]
